FAERS Safety Report 14444274 (Version 2)
Quarter: 2018Q1

REPORT INFORMATION
  Report Type: Spontaneous
  Country: TH (occurrence: TH)
  Receive Date: 20180125
  Receipt Date: 20180126
  Transmission Date: 20180509
  Serious: Yes (Other)
  Sender: FDA-Public Use
  Company Number: TH-VISTAPHARM, INC.-VER201709-000706

PATIENT
  Age: 11 Month
  Sex: Male

DRUGS (3)
  1. INSULIN [Concomitant]
     Active Substance: INSULIN NOS
     Indication: HYPERGLYCAEMIA
  2. PHENYTOIN. [Suspect]
     Active Substance: PHENYTOIN
     Indication: PRODUCT USED FOR UNKNOWN INDICATION
     Route: 042
  3. INSULIN [Concomitant]
     Active Substance: INSULIN NOS
     Indication: GLYCOSURIA

REACTIONS (4)
  - Blood glucose abnormal [Recovering/Resolving]
  - Polyuria [Unknown]
  - Glycosuria [Unknown]
  - Toxicity to various agents [Unknown]
